FAERS Safety Report 5799314-2 (Version None)
Quarter: 2008Q3

REPORT INFORMATION
  Report Type: 
  Country: None (occurrence: None)
  Receive Date: 20080702
  Receipt Date: 20080622
  Transmission Date: 20090109
  Serious: Yes (Other)
  Sender: FDA-Public Use
  Company Number: US-PFIZER INC-2008052510

PATIENT
  Sex: Female

DRUGS (11)
  1. LYRICA [Suspect]
     Indication: FIBROMYALGIA
  2. CHANTIX [Suspect]
  3. SODIUM CHLORIDE 0.9% [Concomitant]
  4. CYMBALTA [Concomitant]
  5. TESSALON [Concomitant]
  6. TRAMADOL HCL [Concomitant]
  7. RITALIN [Concomitant]
  8. VALIUM [Concomitant]
  9. ALBUTEROL [Concomitant]
  10. ALBUTEROL [Concomitant]
  11. ADVAIR DISKUS 100/50 [Concomitant]

REACTIONS (32)
  - APHASIA [None]
  - BALANCE DISORDER [None]
  - BLOOD CHLORIDE INCREASED [None]
  - BLOOD CREATINE PHOSPHOKINASE INCREASED [None]
  - BRADYPHRENIA [None]
  - BRONCHITIS [None]
  - CARDIAC DISORDER [None]
  - COLOUR BLINDNESS [None]
  - COMPUTERISED TOMOGRAM ABNORMAL [None]
  - CONVULSION [None]
  - DIPLOPIA [None]
  - DRY MOUTH [None]
  - DYSARTHRIA [None]
  - ELECTROCARDIOGRAM ABNORMAL [None]
  - ELECTROENCEPHALOGRAM ABNORMAL [None]
  - FEELING DRUNK [None]
  - FIBROMYALGIA [None]
  - FULL BLOOD COUNT ABNORMAL [None]
  - HYPERACUSIS [None]
  - IMPAIRED DRIVING ABILITY [None]
  - LOSS OF CONSCIOUSNESS [None]
  - MEMORY IMPAIRMENT [None]
  - MUSCLE INJURY [None]
  - MYALGIA [None]
  - NEUROLOGICAL SYMPTOM [None]
  - OPHTHALMOLOGICAL EXAMINATION ABNORMAL [None]
  - PAROSMIA [None]
  - PHOTOPHOBIA [None]
  - PINEAL NEOPLASM [None]
  - PITUITARY TUMOUR [None]
  - PLEURISY [None]
  - RED BLOOD CELL COUNT DECREASED [None]
